FAERS Safety Report 5130278-0 (Version None)
Quarter: 2006Q4

REPORT INFORMATION
  Report Type: 
  Country: None (occurrence: None)
  Receive Date: 20061018
  Receipt Date: 20061018
  Transmission Date: 20070319
  Serious: Yes (Hospitalization)
  Sender: FDA-Public Use
  Company Number: None

PATIENT
  Age: 76 Year
  Sex: Male
  Weight: 90.7194 kg

DRUGS (9)
  1. PEMETREXED [Suspect]
     Indication: NON-SMALL CELL LUNG CANCER
     Dosage: 1000 MG IV
     Route: 042
     Dates: start: 20060920, end: 20060920
  2. VALSARTAN [Concomitant]
  3. TEMAZEPAM [Concomitant]
  4. FOLIC ACID [Concomitant]
  5. PROMETHAZINE [Concomitant]
  6. METOPROLOL [Concomitant]
  7. GLYBURIDE [Concomitant]
  8. METFORMIN HCL [Concomitant]
  9. SIMVASTATIN [Concomitant]

REACTIONS (4)
  - ASTHENIA [None]
  - HAEMOGLOBIN DECREASED [None]
  - NEUTROPENIA [None]
  - TACHYCARDIA [None]
